FAERS Safety Report 6169835-1 (Version None)
Quarter: 2009Q2

REPORT INFORMATION
  Report Type: 
  Country: None (occurrence: None)
  Receive Date: 20090428
  Receipt Date: 20090422
  Transmission Date: 20091009
  Serious: Yes (Other)
  Sender: FDA-Public Use
  Company Number: US-BAYER-200918826NA

PATIENT
  Sex: Female

DRUGS (2)
  1. CIPROFLOXACIN HCL [Suspect]
     Indication: INFECTION
     Dosage: TOTAL DAILY DOSE: 8 DF
     Route: 048
     Dates: start: 20081201, end: 20081201
  2. CIPROFLOXACIN HCL [Suspect]
     Route: 042
     Dates: start: 20081201

REACTIONS (3)
  - JOINT INJURY [None]
  - MENISCUS LESION [None]
  - TENDON DISORDER [None]
